FAERS Safety Report 5335664-1 (Version None)
Quarter: 2007Q2

REPORT INFORMATION
  Report Type: 
  Country: None (occurrence: None)
  Receive Date: 20070322
  Receipt Date: 20070205
  Transmission Date: 20071010
  Serious: No
  Sender: FDA-Public Use
  Company Number: 2006US002924

PATIENT
  Age: 69 Year
  Sex: Female
  Weight: 68 kg

DRUGS (7)
  1. VESLCARE (SOLIFENACIN) TABLET, 5MG [Suspect]
     Indication: HYPERTONIC BLADDER
     Dosage: 5 MG,ORAL
     Route: 048
     Dates: start: 20061001
  2. FOLIC ACID [Concomitant]
  3. CRESTOR [Concomitant]
  4. ZOLOFT [Concomitant]
  5. TIAZAC [Concomitant]
  6. FOSAMAX (ALENDRONATE SODIUIM) [Concomitant]
  7. CEPHALEX (CEFALEXIN) [Concomitant]

REACTIONS (2)
  - AMNESIA [None]
  - DEMENTIA [None]
